FAERS Safety Report 7222716-4 (Version None)
Quarter: 2011Q1

REPORT INFORMATION
  Report Type: 
  Country: None (occurrence: None)
  Receive Date: 20110106
  Receipt Date: 20110106
  Transmission Date: 20110831
  Serious: Yes (Life-Threatening, Hospitalization, Other)
  Sender: FDA-Public Use
  Company Number: None

PATIENT
  Sex: Female
  Weight: 48.2 kg

DRUGS (1)
  1. LISINOPRIL [Suspect]
     Indication: HYPERTENSION
     Dosage: LISINOPRIL 20MG QD PO
     Route: 048
     Dates: start: 20101101, end: 20101226

REACTIONS (2)
  - SWOLLEN TONGUE [None]
  - PHARYNGEAL OEDEMA [None]
